FAERS Safety Report 4592146-2 (Version None)
Quarter: 2005Q1

REPORT INFORMATION
  Report Type: 
  Country: None (occurrence: None)
  Receive Date: 20050226
  Receipt Date: 20050128
  Transmission Date: 20050727
  Serious: Yes (Disabling)
  Sender: FDA-Public Use
  Company Number: DE-MERCK-0501DEU00280

PATIENT
  Age: 76 Year
  Sex: Male
  Weight: 95 kg

DRUGS (3)
  1. PROSCAR [Suspect]
     Indication: BENIGN PROSTATIC HYPERPLASIA
     Route: 048
     Dates: start: 20020725, end: 20050204
  2. TAMSULOSIN HYDROCHLORIDE [Concomitant]
     Indication: DYSURIA
     Route: 047
     Dates: start: 20041221
  3. TADALAFIL [Concomitant]
     Route: 065
     Dates: start: 20030101

REACTIONS (2)
  - ANORGASMIA [None]
  - EJACULATION FAILURE [None]
